FAERS Safety Report 4485717-5 (Version None)
Quarter: 2004Q4

REPORT INFORMATION
  Report Type: 
  Country: None (occurrence: None)
  Receive Date: 20041026
  Receipt Date: 20041015
  Transmission Date: 20050328
  Serious: Yes (Other)
  Sender: FDA-Public Use
  Company Number: 12724621

PATIENT
  Age: 29 Year
  Sex: Female

DRUGS (3)
  1. LAMIVUDINE [Suspect]
     Indication: HIV INFECTION
     Dates: start: 20040820
  2. EFAVIRENZ [Suspect]
     Indication: HIV INFECTION
     Dates: start: 20040820
  3. STAVUDINE [Suspect]
     Indication: HIV INFECTION
     Dates: start: 20040820

REACTIONS (8)
  - AFFECTIVE DISORDER [None]
  - ANGER [None]
  - DISORIENTATION [None]
  - DIZZINESS [None]
  - HALLUCINATION, AUDITORY [None]
  - INSOMNIA [None]
  - IRRITABILITY [None]
  - NIGHTMARE [None]
